FAERS Safety Report 10762456 (Version 3)
Quarter: 2015Q2

REPORT INFORMATION
  Report Type: Spontaneous
  Country: US (occurrence: US)
  Receive Date: 20150204
  Receipt Date: 20150423
  Transmission Date: 20150821
  Serious: Yes (Other)
  Sender: FDA-Public Use
  Company Number: PHEH2015US001902

PATIENT
  Sex: Female

DRUGS (3)
  1. OCTREOTIDE [Suspect]
     Active Substance: OCTREOTIDE
     Indication: ACROMEGALY
     Dosage: 40 OT (40-50)
     Route: 065
  2. SOMAVERT [Suspect]
     Active Substance: PEGVISOMANT
     Indication: PRODUCT USED FOR UNKNOWN INDICATION
     Dosage: 15 OT, (2 X WEEK)
     Route: 065
  3. OCTREOTIDE [Suspect]
     Active Substance: OCTREOTIDE
     Dosage: 10 OT, QMO
     Route: 065

REACTIONS (11)
  - Neoplasm [Unknown]
  - Arthropathy [Unknown]
  - Jaw disorder [Unknown]
  - Bradycardia [Recovered/Resolved]
  - Bone formation increased [Unknown]
  - Blood iron decreased [Unknown]
  - Throat tightness [Unknown]
  - Cerebrovascular accident [Unknown]
  - Carpal tunnel syndrome [Unknown]
  - Malabsorption [Unknown]
  - Thyroid neoplasm [Unknown]
